FAERS Safety Report 19633756 (Version 3)
Quarter: 2024Q3

REPORT INFORMATION
  Report Type: Report from Study
  Country: MX (occurrence: MX)
  Receive Date: 20210729
  Receipt Date: 20240812
  Transmission Date: 20241016
  Serious: Yes (Other)
  Sender: NOVARTIS
  Company Number: MX-NOVARTISPH-NVSC2021MX124791

PATIENT
  Sex: Female
  Weight: 66 kg

DRUGS (8)
  1. GILENYA [Suspect]
     Active Substance: FINGOLIMOD HYDROCHLORIDE
     Indication: Multiple sclerosis
     Dosage: 0.5 MG, QD
     Route: 048
     Dates: start: 2019
  2. GILENYA [Suspect]
     Active Substance: FINGOLIMOD HYDROCHLORIDE
     Dosage: 0.5 MG, QD, BY MOUTH
     Route: 048
     Dates: start: 20220609
  3. PREDNISONE [Suspect]
     Active Substance: PREDNISONE
     Indication: Product used for unknown indication
     Dosage: UNK
     Route: 048
  4. PREGABALIN [Concomitant]
     Active Substance: PREGABALIN
     Indication: Neuralgia
     Dosage: 1 DOSAGE FORM, QD, (START DATE: 10 YEARS AGO)
     Route: 048
  5. CELECOXIB [Concomitant]
     Active Substance: CELECOXIB
     Indication: Pain in extremity
     Dosage: 1 DOSAGE FORM, QD (START DATE: 8 YEARS AGO)
     Route: 048
  6. LOSARTAN [Concomitant]
     Active Substance: LOSARTAN\LOSARTAN POTASSIUM
     Indication: Hypertension
     Dosage: 1 DOSAGE FORM QD, 1 TABLET/100 MG (START DATE: 5 YEARS AGO)
     Route: 048
  7. OMEPRAZOLE [Concomitant]
     Active Substance: OMEPRAZOLE
     Indication: Dyspepsia
     Dosage: 1 DOSAGE FORM, QD, WHEN REQUIRED FROM 20 YEARS
     Route: 048
  8. BOTULINUM TOXIN NOS [Concomitant]
     Active Substance: BOTULINUM TOXIN NOS
     Indication: Muscle spasticity
     Dosage: SEVERAL APPLICATIONS X 100U (ABOUT 50 IN ONE SESSION), Q 4 MONTHS (START DATE: 10 YEARS AGO)
     Route: 058

REACTIONS (19)
  - Dizziness [Not Recovered/Not Resolved]
  - Trigeminal neuralgia [Recovered/Resolved]
  - Speech disorder [Not Recovered/Not Resolved]
  - Facial pain [Not Recovered/Not Resolved]
  - Gastric infection [Recovered/Resolved]
  - Vomiting [Recovered/Resolved]
  - Diarrhoea [Recovered/Resolved]
  - Overweight [Not Recovered/Not Resolved]
  - Memory impairment [Unknown]
  - Decreased appetite [Unknown]
  - Hypersomnia [Unknown]
  - Fall [Not Recovered/Not Resolved]
  - Neck pain [Unknown]
  - Product administration interrupted [Unknown]
  - Weight increased [Unknown]
  - Heat exhaustion [Unknown]
  - Depression [Not Recovered/Not Resolved]
  - Movement disorder [Not Recovered/Not Resolved]
  - Fatigue [Not Recovered/Not Resolved]

NARRATIVE: CASE EVENT DATE: 20190101
